FAERS Safety Report 10212477 (Version 2)
Quarter: 2014Q2

REPORT INFORMATION
  Report Type: Spontaneous
  Country: US (occurrence: US)
  Receive Date: 20140602
  Receipt Date: 20140602
  Transmission Date: 20141212
  Serious: No
  Sender: FDA-Public Use
  Company Number: US-AMGEN-USASP2014028578

PATIENT
  Age: 47 Year
  Sex: Male
  Weight: 88.89 kg

DRUGS (7)
  1. ENBREL [Suspect]
     Indication: RHEUMATOID ARTHRITIS
     Dosage: 50 MG, QWK
     Route: 058
     Dates: start: 20140411
  2. METHYLPREDNISOLONE [Concomitant]
     Indication: SYNOVITIS
     Dosage: 8 MG, QD
     Route: 048
     Dates: start: 201302
  3. AZATHIOPRINE [Concomitant]
     Indication: RHEUMATOID ARTHRITIS
     Dosage: 100 MG, QD
     Route: 048
     Dates: start: 201308
  4. SULFASALAZINE [Concomitant]
     Indication: RHEUMATOID ARTHRITIS
     Dosage: 1000 G, BID
     Route: 048
     Dates: start: 20131126
  5. LEFLUNOMIDE [Concomitant]
     Indication: RHEUMATOID ARTHRITIS
     Dosage: 20 MG, QD
     Route: 048
     Dates: start: 20130106
  6. TRAMADOL [Concomitant]
     Indication: PAIN
     Dosage: 50 MG, AS NECESSARY
     Route: 048
     Dates: start: 20131114
  7. CLONAZEPAM [Concomitant]
     Indication: ANXIETY
     Dosage: 1 MG, AT BEDTIME
     Route: 048
     Dates: start: 2011

REACTIONS (6)
  - Pruritus [Recovered/Resolved]
  - Rash [Recovered/Resolved]
  - Injection site warmth [Not Recovered/Not Resolved]
  - Injection site erythema [Not Recovered/Not Resolved]
  - Injection site pruritus [Not Recovered/Not Resolved]
  - Injection site swelling [Not Recovered/Not Resolved]
